FAERS Safety Report 8916770 (Version 1)
Quarter: 2012Q4

REPORT INFORMATION
  Report Type: 
  Country: JP (occurrence: JP)
  Receive Date: 20121120
  Receipt Date: 20121120
  Transmission Date: 20130627
  Serious: Yes (Life-Threatening, Other)
  Sender: FDA-Public Use
  Company Number: JP-ROCHE-251889

PATIENT
  Age: 2 Year
  Sex: Male
  Weight: 11.5 kg

DRUGS (8)
  1. ROCEPHIN [Suspect]
     Indication: PRODUCT USED FOR UNKNOWN INDICATION
     Route: 042
     Dates: start: 20001228, end: 20001228
  2. GLUCOSE [Concomitant]
     Route: 042
     Dates: start: 20001228, end: 20001228
  3. CLARITH [Concomitant]
     Route: 048
     Dates: start: 20001225, end: 20001228
  4. AMBROXOL HYDROCHLORIDE [Concomitant]
     Route: 048
     Dates: start: 20001225, end: 20001228
  5. ASVERIN (TIPEPIDINE HIBENZATE) [Concomitant]
     Route: 048
     Dates: start: 20001225, end: 20001228
  6. TELGIN-G [Concomitant]
     Route: 048
     Dates: start: 20001225, end: 20001228
  7. HOKUNALIN [Concomitant]
     Route: 048
     Dates: start: 20001225, end: 20001228
  8. THEO-DUR [Concomitant]
     Route: 048
     Dates: start: 20001225, end: 20001228

REACTIONS (2)
  - Cardio-respiratory arrest [Recovering/Resolving]
  - Liver injury [Recovered/Resolved]
